FAERS Safety Report 8345853-X (Version None)
Quarter: 2012Q2

REPORT INFORMATION
  Report Type: 
  Country: None (occurrence: None)
  Receive Date: 20120509
  Receipt Date: 20120430
  Transmission Date: 20120825
  Serious: No
  Sender: FDA-Public Use
  Company Number: US-BIOGENIDEC-2011BI034230

PATIENT
  Sex: Female

DRUGS (1)
  1. TYSABRI [Suspect]
     Indication: MULTIPLE SCLEROSIS
     Route: 042
     Dates: start: 20101111

REACTIONS (6)
  - FEELING ABNORMAL [None]
  - PAIN IN EXTREMITY [None]
  - FATIGUE [None]
  - AMNESIA [None]
  - INFUSION RELATED REACTION [None]
  - LOSS OF CONTROL OF LEGS [None]
